FAERS Safety Report 7471766-1 (Version None)
Quarter: 2011Q2

REPORT INFORMATION
  Report Type: 
  Country: None (occurrence: None)
  Receive Date: 20110511
  Receipt Date: 20100413
  Transmission Date: 20111010
  Serious: No
  Sender: FDA-Public Use
  Company Number: A0854799A

PATIENT
  Age: 69 Year
  Sex: Female

DRUGS (3)
  1. XELODA [Suspect]
     Route: 048
     Dates: start: 20100303, end: 20100319
  2. SYNTHROID [Concomitant]
  3. TYKERB [Suspect]
     Indication: BREAST CANCER
     Dosage: 5TAB PER DAY
     Route: 048
     Dates: start: 20100303, end: 20100319

REACTIONS (3)
  - DIARRHOEA [None]
  - WEIGHT DECREASED [None]
  - DEHYDRATION [None]
